FAERS Safety Report 8963257 (Version 1)
Quarter: 2012Q4

REPORT INFORMATION
  Report Type: Report from Study
  Country: GB (occurrence: GB)
  Receive Date: 20121214
  Receipt Date: 20121214
  Transmission Date: 20130627
  Serious: Yes (Death, Hospitalization, Other)
  Sender: FDA-Public Use
  Company Number: GB-PFIZER INC-2012309271

PATIENT
  Age: 68 Year
  Sex: Male
  Weight: 87.6 kg

DRUGS (37)
  1. METHYLPREDNISOLONE [Suspect]
     Indication: PROPHYLAXIS AGAINST RENAL TRANSPLANT REJECTION
     Dosage: 500 mg, 1x/day
     Route: 042
     Dates: start: 20030629
  2. METHYLPREDNISOLONE [Suspect]
     Dosage: 500 mg, 1x/day
     Route: 042
     Dates: start: 20030708, end: 20030711
  3. PREDNISOLONE [Suspect]
     Indication: PROPHYLAXIS AGAINST RENAL TRANSPLANT REJECTION
     Dosage: 20 mg, 1x/day
     Route: 048
     Dates: start: 20030630
  4. PREDNISOLONE [Suspect]
     Dosage: 15 mg, 1x/day
     Route: 048
     Dates: start: 20030730
  5. PREDNISOLONE [Suspect]
     Dosage: 10 mg, 1x/day
     Route: 048
     Dates: start: 20030812
  6. PREDNISOLONE [Suspect]
     Dosage: 7.5 mg, 1x/day
     Route: 048
     Dates: start: 20030903
  7. DACLIZUMAB [Suspect]
     Indication: RENAL TRANSPLANT
     Dosage: 180 mg, single
     Route: 042
     Dates: start: 20030629, end: 20030629
  8. DACLIZUMAB [Suspect]
     Dosage: 80 mg, 1 in 2 weeks
     Route: 042
     Dates: start: 20030714
  9. DACLIZUMAB [Suspect]
     Dosage: 90 mg, 1 in 2 weeks
     Route: 042
     Dates: start: 20030730, end: 20030828
  10. MYCOPHENOLATE MOFETIL [Suspect]
     Indication: RENAL TRANSPLANT
     Dosage: 2 g, 2x/day
     Route: 048
     Dates: start: 20030630, end: 20030919
  11. CICLOSPORIN [Suspect]
     Indication: RENAL TRANSPLANT
     Dosage: 100 mg, 2x/day
     Route: 048
     Dates: start: 20030630
  12. CICLOSPORIN [Suspect]
     Dosage: 50 mg, 2x/day
     Route: 048
     Dates: start: 20030704
  13. CICLOSPORIN [Suspect]
     Dosage: 50 mg, 2x/day
     Route: 048
     Dates: start: 20030710
  14. CICLOSPORIN [Suspect]
     Dosage: 100 mg, 2x/day
     Route: 048
     Dates: start: 20030721
  15. CICLOSPORIN [Suspect]
     Dosage: 75 mg, 2x/day
     Route: 048
     Dates: start: 20030814
  16. CICLOSPORIN [Suspect]
     Dosage: 100 mg, 2x/day
     Route: 048
     Dates: start: 20030820
  17. GANCICLOVIR [Concomitant]
     Dosage: 500 mg, 2x/week
     Route: 048
     Dates: start: 20030702
  18. GANCICLOVIR [Concomitant]
     Dosage: 500 mg, weekly
     Route: 048
     Dates: start: 20030714
  19. GANCICLOVIR [Concomitant]
     Dosage: 1 g, 1x/day
     Route: 048
     Dates: start: 20030806
  20. GANCICLOVIR [Concomitant]
     Dosage: 1.5 g, 1x/day
     Route: 048
     Dates: start: 20030828
  21. ATENOLOL [Concomitant]
     Dosage: 100 mg, 1x/day
     Route: 048
     Dates: start: 20030630
  22. ATENOLOL [Concomitant]
     Dosage: 50 mg, 1x/day
     Route: 048
     Dates: start: 20030902
  23. AMLODIPINE [Concomitant]
     Dosage: 50 mg, UNK
     Route: 048
     Dates: start: 20030705
  24. OMEPRAZOLE [Concomitant]
     Dosage: 20 mg, 2x/day
     Route: 048
     Dates: start: 20030629
  25. OMEPRAZOLE [Concomitant]
     Dosage: 20 mg, 2x/day
     Route: 048
     Dates: start: 20030806
  26. METOCLOPRAMIDE [Concomitant]
     Dosage: 5 mg, 5x/day
     Route: 042
     Dates: start: 20030930
  27. AMIODARONE [Concomitant]
     Dosage: 50 mg, 1x/day
     Route: 048
     Dates: start: 20030630, end: 20030817
  28. CO-TRIMOXAZOLE [Concomitant]
     Dosage: 480 mg, 1x/day
     Route: 048
     Dates: start: 20030630
  29. LINEZOLID [Concomitant]
     Dosage: 600 mg, UNK
     Route: 042
     Dates: start: 20030714, end: 20030714
  30. ACTRAPID [Concomitant]
     Dosage: 10 IU, 1 in 1 total
     Dates: start: 20030701
  31. AUGMENTIN [Concomitant]
     Dosage: 1.2 g, 1 in 1 total
     Route: 042
     Dates: start: 20030629
  32. DIGOXIN [Concomitant]
     Dosage: 62.5 ug, 1x/day
     Route: 048
     Dates: start: 20030816
  33. ENOXAPARIN [Concomitant]
     Dosage: 40 IU, 1x/day
     Route: 058
     Dates: end: 20030605
  34. ENOXAPARIN [Concomitant]
     Dosage: 40 IU, 1x/day
     Route: 058
     Dates: start: 20030630
  35. FRUSEMIDE [Concomitant]
     Dosage: 160 mg, single
     Route: 042
     Dates: start: 20030630
  36. FRUSEMIDE [Concomitant]
     Dosage: 80 mg, single
     Route: 042
     Dates: start: 20030701
  37. RANITIDINE [Concomitant]
     Dosage: 150 mg, single
     Route: 048
     Dates: start: 20030630

REACTIONS (8)
  - Bronchopulmonary aspergillosis [Fatal]
  - Septic shock [Fatal]
  - Dyspnoea [Fatal]
  - Chest pain [Fatal]
  - White blood cell count increased [Not Recovered/Not Resolved]
  - Angina unstable [Recovered/Resolved]
  - Substance-induced psychotic disorder [Recovered/Resolved]
  - Abdominal pain [Not Recovered/Not Resolved]
